FAERS Safety Report 9278353 (Version 5)
Quarter: 2013Q3

REPORT INFORMATION
  Report Type: Report from Study
  Country: FR (occurrence: FR)
  Receive Date: 20130508
  Receipt Date: 20130910
  Transmission Date: 20140515
  Serious: Yes (Life-Threatening, Hospitalization)
  Sender: FDA-Public Use
  Company Number: FR-ROCHE-1208854

PATIENT
  Age: 69 Year
  Sex: Male
  Weight: 82 kg

DRUGS (6)
  1. BEVACIZUMAB [Suspect]
     Indication: LUNG NEOPLASM MALIGNANT
     Dosage: LAST DOSE PRIOR TO EVENT:06/FEB/2013; 05/MAR/2013,
     Route: 042
     Dates: start: 20121226, end: 20130326
  2. BEVACIZUMAB [Suspect]
     Dosage: DOSE REDUCED
     Route: 042
     Dates: start: 20130403, end: 20130430
  3. BEVACIZUMAB [Suspect]
     Route: 042
     Dates: start: 20130618
  4. CARBOPLATIN [Suspect]
     Indication: LUNG NEOPLASM MALIGNANT
     Route: 065
  5. PEMETREXED [Suspect]
     Indication: LUNG NEOPLASM MALIGNANT
     Dosage: LAST DOSE PRIOR TO SAE: 05/MAR/2013
     Route: 042
     Dates: start: 20121226, end: 20130326
  6. PEMETREXED [Suspect]
     Dosage: LAST DOSE PRIOR TO SAE: 03/APR/2013, PERMANENTLY DISCONTINUED.
     Route: 042
     Dates: start: 20130403

REACTIONS (3)
  - Bone marrow failure [Recovered/Resolved]
  - Thrombocytopenia [Recovered/Resolved]
  - Bone marrow failure [Recovered/Resolved]
